FAERS Safety Report 15048454 (Version 1)
Quarter: 2018Q2

REPORT INFORMATION
  Report Type: Report from Study
  Country: ES (occurrence: ES)
  Receive Date: 20180622
  Receipt Date: 20180622
  Transmission Date: 20180711
  Serious: Yes (Life-Threatening, Hospitalization, Other)
  Sender: FDA-Public Use
  Company Number: ES-TEVA-2018-ES-912096

PATIENT
  Age: 85 Year
  Sex: Male

DRUGS (2)
  1. ?CIDO ACETILSALIC?LICO [Interacting]
     Active Substance: ASPIRIN
     Dosage: 100 MILLIGRAM DAILY;
     Route: 048
     Dates: start: 20141230, end: 20160823
  2. CISPLATIN. [Suspect]
     Active Substance: CISPLATIN
     Dosage: 20 MILLIGRAM DAILY;
     Route: 048
     Dates: start: 20150709

REACTIONS (2)
  - Gastrointestinal haemorrhage [Recovered/Resolved]
  - Drug interaction [Unknown]

NARRATIVE: CASE EVENT DATE: 20160805
